FAERS Safety Report 23826896 (Version 1)
Quarter: 2024Q2

REPORT INFORMATION
  Report Type: Spontaneous
  Country: US (occurrence: None)
  Receive Date: 20240506
  Receipt Date: 20240506
  Transmission Date: 20240715
  Serious: No
  Sender: FDA-Public Use
  Company Number: None

PATIENT
  Age: 78 Year
  Sex: Male
  Weight: 123.38 kg

DRUGS (8)
  1. SUCRAID [Suspect]
     Active Substance: SACROSIDASE
     Indication: Product used for unknown indication
     Dosage: OTHER FREQUENCY : 2 ML PER MEAL ;?
     Route: 048
     Dates: start: 20240317, end: 20240327
  2. VALSARTAN [Concomitant]
     Active Substance: VALSARTAN
  3. COREG [Concomitant]
     Active Substance: CARVEDILOL
  4. CREON [Concomitant]
     Active Substance: PANCRELIPASE AMYLASE\PANCRELIPASE LIPASE\PANCRELIPASE PROTEASE
  5. ASPIRIN [Concomitant]
     Active Substance: ASPIRIN
  6. PANTOPRAZOLE [Concomitant]
     Active Substance: PANTOPRAZOLE
  7. VITAMIN B COMPLEX [Concomitant]
     Active Substance: CYANOCOBALAMIN\DEXPANTHENOL\NIACINAMIDE\PYRIDOXINE HYDROCHLORIDE\RIBOFLAVIN 5^-PHOSPHATE SODIUM\THIA
  8. SR 1/DAY VITAMIN [Concomitant]

REACTIONS (4)
  - Headache [None]
  - Gastrointestinal pain [None]
  - Therapy interrupted [None]
  - Abdominal distension [None]

NARRATIVE: CASE EVENT DATE: 20240327
